FAERS Safety Report 23421661 (Version 1)
Quarter: 2024Q1

REPORT INFORMATION
  Report Type: Spontaneous
  Country: AU (occurrence: AU)
  Receive Date: 20240119
  Receipt Date: 20240119
  Transmission Date: 20240409
  Serious: Yes (Other)
  Sender: FDA-Public Use
  Company Number: AU-TAKEDA-2024TUS004974

PATIENT
  Age: 47 Year
  Sex: Male

DRUGS (7)
  1. MESALAMINE [Suspect]
     Active Substance: MESALAMINE
     Indication: Proctitis ulcerative
     Dosage: 4.8 MILLIGRAM, QD
     Route: 065
  2. PREDNISOLONE [Suspect]
     Active Substance: PREDNISOLONE
     Indication: Proctitis ulcerative
     Dosage: UNK
     Route: 065
  3. AZATHIOPRINE [Suspect]
     Active Substance: AZATHIOPRINE
     Indication: Proctitis ulcerative
     Dosage: 200 MILLIGRAM, QD
     Route: 065
  4. INFLIXIMAB [Suspect]
     Active Substance: INFLIXIMAB
     Indication: Proctitis ulcerative
     Dosage: 5 MILLIGRAM/KILOGRAM, MONTHLY
     Route: 065
     Dates: start: 201811
  5. PREDNISOLONE [Suspect]
     Active Substance: PREDNISOLONE
     Indication: Proctitis ulcerative
     Dosage: 25 MILLIGRAM
     Route: 065
  6. CHOLECALCIFEROL [Concomitant]
     Active Substance: CHOLECALCIFEROL
     Dosage: UNK
     Route: 065
  7. PANTOPRAZOLE [Concomitant]
     Active Substance: PANTOPRAZOLE
     Dosage: UNK
     Route: 065

REACTIONS (2)
  - Arthritis [Unknown]
  - Proctitis ulcerative [Unknown]
